FAERS Safety Report 15594120 (Version 2)
Quarter: 2018Q4

REPORT INFORMATION
  Report Type: Not Available
  Country: US (occurrence: US)
  Receive Date: 20181107
  Receipt Date: 20181121
  Transmission Date: 20190205
  Serious: No
  Sender: FDA-Public Use
  Company Number: US-NEUROCRINE BIOSCIENCES INC.-2018NBI03151

PATIENT
  Age: 67 Year
  Sex: Female

DRUGS (1)
  1. INGREZZA [Suspect]
     Active Substance: VALBENAZINE
     Indication: TARDIVE DYSKINESIA
     Route: 048
     Dates: start: 20181018

REACTIONS (14)
  - Sluggishness [Recovering/Resolving]
  - Gait disturbance [Not Recovered/Not Resolved]
  - Diarrhoea [Recovering/Resolving]
  - Fatigue [Recovering/Resolving]
  - Dry mouth [Unknown]
  - Back pain [Recovering/Resolving]
  - Depressed mood [Unknown]
  - Nausea [Recovering/Resolving]
  - Memory impairment [Unknown]
  - Somnolence [Recovering/Resolving]
  - Pruritus [Recovering/Resolving]
  - Dyskinesia [Unknown]
  - Drug effect decreased [None]
  - Wound infection [Unknown]

NARRATIVE: CASE EVENT DATE: 2018
